FAERS Safety Report 7789939-7 (Version None)
Quarter: 2011Q3

REPORT INFORMATION
  Report Type: 
  Country: None (occurrence: None)
  Receive Date: 20110930
  Receipt Date: 20101201
  Transmission Date: 20111222
  Serious: No
  Sender: FDA-Public Use
  Company Number: US-ASTRAZENECA-2010SE56956

PATIENT
  Age: 67 Year
  Sex: Female
  Weight: 59.9 kg

DRUGS (2)
  1. XOPENEX HFA [Suspect]
     Indication: ASTHMA EXERCISE INDUCED
     Route: 055
     Dates: start: 20100101
  2. ARIMIDEX [Suspect]
     Indication: BREAST CANCER
     Route: 048
     Dates: start: 20100101, end: 20101030

REACTIONS (4)
  - DRY MOUTH [None]
  - STOMATITIS [None]
  - ORAL PAIN [None]
  - TOOTH DISORDER [None]
